FAERS Safety Report 7649102-7 (Version None)
Quarter: 2011Q3

REPORT INFORMATION
  Report Type: 
  Country: None (occurrence: None)
  Receive Date: 20110726
  Receipt Date: 20110711
  Transmission Date: 20111222
  Serious: Yes (Other)
  Sender: FDA-Public Use
  Company Number: US-2011-10505

PATIENT
  Age: 16 Year
  Sex: Female

DRUGS (8)
  1. FLUDARABINE PHOSPHATE [Concomitant]
  2. ACETAMINOPHEN [Concomitant]
  3. PHENYTOIN [Concomitant]
  4. BUSULFAN [Suspect]
     Indication: STEM CELL TRANSPLANT
     Dosage: 12.8 MG/KG, DAILY DOSE, INTRAVENOUS
     Route: 042
  5. METHYLPREDNISOLONE [Concomitant]
  6. TACROLIMUS [Concomitant]
  7. ALEMTUZUMAB (ALEMTUZUMAB) [Concomitant]
  8. DIPHENHYDRAMINE HCL [Concomitant]

REACTIONS (5)
  - ACUTE HEPATIC FAILURE [None]
  - LIVER TRANSPLANT [None]
  - ACUTE GRAFT VERSUS HOST DISEASE IN INTESTINE [None]
  - ACUTE GRAFT VERSUS HOST DISEASE IN SKIN [None]
  - TOXICITY TO VARIOUS AGENTS [None]
